FAERS Safety Report 5209331-9 (Version None)
Quarter: 2007Q1

REPORT INFORMATION
  Report Type: 
  Country: None (occurrence: None)
  Receive Date: 20070116
  Receipt Date: 20070110
  Transmission Date: 20070707
  Serious: Yes (Hospitalization)
  Sender: FDA-Public Use
  Company Number: US-SANOFI-SYNTHELABO-D01200700128

PATIENT
  Sex: Female
  Weight: 57.2 kg

DRUGS (10)
  1. AVASTIN [Suspect]
     Dates: end: 20061221
  2. LEXAPRO [Concomitant]
  3. LEUCOVORIN CALCIUM [Suspect]
     Route: 042
     Dates: start: 20061221, end: 20061221
  4. LORTAB [Concomitant]
     Dosage: PRN
  5. FLUOROURACIL [Suspect]
     Dosage: 400 MG/M?, IV BOLUS D1+D2 FOLLOWED BY 5-FU 2400 MG/M? OVER 46-HOUR CONTINUOUS INFUSION.
     Route: 042
     Dates: start: 20061221, end: 20061221
  6. COUMADIN [Concomitant]
  7. OXALIPLATIN [Suspect]
     Route: 042
     Dates: start: 20061221, end: 20061221
  8. ATIVAN [Concomitant]
     Dosage: PRN
  9. SR57746 OR PLACEBO [Suspect]
     Indication: NEUROLOGICAL SYMPTOM
     Route: 048
     Dates: start: 20061130
  10. MEDROL [Concomitant]

REACTIONS (1)
  - HALLUCINATION [None]
